FAERS Safety Report 23173733 (Version 4)
Quarter: 2024Q3

REPORT INFORMATION
  Report Type: Report from Study
  Country: CN (occurrence: CN)
  Receive Date: 20231111
  Receipt Date: 20240823
  Transmission Date: 20241017
  Serious: Yes (Other)
  Sender: GILEAD
  Company Number: CN-FOSUNKITE-FOSUNKITE-20231236

PATIENT
  Age: 26 Year
  Sex: Female

DRUGS (12)
  1. AXICABTAGENE CILOLEUCEL [Suspect]
     Active Substance: AXICABTAGENE CILOLEUCEL
     Indication: Non-Hodgkin^s lymphoma
     Dosage: 9.3?10^7 CELLS (NUMBER OF CAR-T CELLS)
     Route: 042
     Dates: start: 20230915, end: 20230915
  2. FLUDARABINE [Suspect]
     Active Substance: FLUDARABINE PHOSPHATE
     Indication: Lymphodepletion
     Dosage: 40 MG
     Route: 041
     Dates: start: 20230911, end: 20230912
  3. CYCLOPHOSPHAMIDE [Suspect]
     Active Substance: CYCLOPHOSPHAMIDE
     Indication: Lymphodepletion
     Dosage: 600 MG
     Route: 041
     Dates: start: 20230911, end: 20230912
  4. SINTILIMAB [Concomitant]
     Active Substance: SINTILIMAB
     Indication: Non-Hodgkin^s lymphoma
     Dosage: 100 MG
     Route: 041
     Dates: start: 20231001, end: 20231001
  5. CARMUSTINE [Concomitant]
     Active Substance: CARMUSTINE
     Dosage: 600 MG
     Route: 042
     Dates: start: 20230827
  6. RITUXIMAB [Concomitant]
     Active Substance: RITUXIMAB
     Dosage: 600 MG
     Route: 041
     Dates: start: 20230827
  7. RITUXIMAB [Concomitant]
     Active Substance: RITUXIMAB
     Dosage: 600 MG
     Route: 041
     Dates: start: 20231016
  8. OXALIPLATIN [Concomitant]
     Active Substance: OXALIPLATIN
     Dosage: 195 MG
     Route: 041
     Dates: start: 20230828
  9. THIOTEPA [Concomitant]
     Active Substance: THIOTEPA
     Dosage: 300 MG
     Route: 041
     Dates: start: 20230829
  10. NOREPINEPHRINE BITARTRATE [Concomitant]
     Active Substance: NOREPINEPHRINE BITARTRATE
     Dosage: UNK
     Dates: start: 20230915, end: 20230928
  11. NOREPINEPHRINE BITARTRATE [Concomitant]
     Active Substance: NOREPINEPHRINE BITARTRATE
     Dosage: UNK
     Dates: start: 20230929, end: 20230930
  12. HUMAN IMMUNOGLOBULIN G [Concomitant]
     Active Substance: HUMAN IMMUNOGLOBULIN G
     Dosage: 10 G, QD
     Route: 041
     Dates: start: 20231005

REACTIONS (9)
  - Pneumonia bacterial [Recovered/Resolved]
  - Anaemia [Not Recovered/Not Resolved]
  - Platelet count decreased [Recovering/Resolving]
  - White blood cell count decreased [Recovered/Resolved]
  - Neutrophil count decreased [Recovering/Resolving]
  - Lymphocyte count decreased [Recovered/Resolved]
  - Dysbiosis [Not Recovered/Not Resolved]
  - B-lymphocyte count decreased [Not Recovered/Not Resolved]
  - Diarrhoea [Recovered/Resolved]

NARRATIVE: CASE EVENT DATE: 20230917
